FAERS Safety Report 8460369-8 (Version None)
Quarter: 2012Q2

REPORT INFORMATION
  Report Type: 
  Country: None (occurrence: None)
  Receive Date: 20120622
  Receipt Date: 20120614
  Transmission Date: 20120825
  Serious: Yes (Hospitalization)
  Sender: FDA-Public Use
  Company Number: FR-ABBOTT-12P-056-0946802-02

PATIENT
  Age: 36 Year
  Sex: Female

DRUGS (13)
  1. HUMIRA [Suspect]
     Route: 058
     Dates: start: 20120501
  2. DICETEL [Concomitant]
     Indication: ABDOMINAL PAIN
     Dates: start: 20090408
  3. HUMIRA [Suspect]
     Indication: CROHN'S DISEASE
     Route: 058
     Dates: start: 20090203, end: 20090203
  4. HUMIRA [Suspect]
     Route: 058
  5. PHOSPHONEUROS [Concomitant]
     Indication: BLOOD PHOSPHORUS DECREASED
     Route: 048
     Dates: start: 20090404
  6. ECONAZOLE NITRATE [Concomitant]
     Indication: VULVOVAGINAL MYCOTIC INFECTION
     Dates: start: 20090403
  7. ACETAMINOPHEN [Concomitant]
     Indication: FIBROMYALGIA
     Dates: start: 20100326, end: 20100326
  8. TRIMEBUTINE [Concomitant]
     Indication: ABDOMINAL PAIN
     Dates: start: 20090407
  9. ACETAMINOPHEN [Concomitant]
     Indication: PAIN
     Dates: start: 20090407
  10. TRAMADOL HCL [Concomitant]
     Indication: PAIN
     Dates: start: 20090408
  11. SPASFON [Concomitant]
     Indication: ABDOMINAL PAIN
     Dates: start: 20090407
  12. HUMIRA [Suspect]
     Route: 058
     Dates: end: 20100327
  13. POLYETHYLENE GLYCOL [Concomitant]
     Indication: CONSTIPATION
     Dates: start: 20090407

REACTIONS (1)
  - CROHN'S DISEASE [None]
